FAERS Safety Report 19127019 (Version 2)
Quarter: 2021Q2

REPORT INFORMATION
  Report Type: Report from Study
  Country: None (occurrence: NL)
  Receive Date: 20210412
  Receipt Date: 20210507
  Transmission Date: 20210717
  Serious: Yes (Death, Other)
  Sender: FDA-Public Use
  Company Number: NL-ABBVIE-21K-114-3849305-00

PATIENT
  Age: 32 Year
  Sex: Female
  Weight: 52 kg

DRUGS (4)
  1. VENETOCLAX. [Suspect]
     Active Substance: VENETOCLAX
     Route: 048
     Dates: start: 20210301, end: 20210314
  2. AZACITIDINE. [Suspect]
     Active Substance: AZACITIDINE
     Dosage: 50MG/M2
     Route: 058
     Dates: start: 20210301, end: 20210307
  3. VENETOCLAX. [Suspect]
     Active Substance: VENETOCLAX
     Indication: ACUTE MYELOID LEUKAEMIA
     Route: 048
     Dates: start: 20210118, end: 20210214
  4. AZACITIDINE. [Suspect]
     Active Substance: AZACITIDINE
     Indication: ACUTE MYELOID LEUKAEMIA
     Dosage: 75MG/M2
     Route: 058
     Dates: start: 20210118, end: 20210122

REACTIONS (7)
  - Escherichia bacteraemia [Recovered/Resolved]
  - Infection [Recovered/Resolved]
  - Leukaemia [Fatal]
  - Off label use [Unknown]
  - Aspergillus infection [Recovered/Resolved]
  - General physical condition abnormal [Unknown]
  - Enterococcal bacteraemia [Recovered/Resolved]

NARRATIVE: CASE EVENT DATE: 2021
